FAERS Safety Report 10630696 (Version 1)
Quarter: 2014Q4

REPORT INFORMATION
  Report Type: Spontaneous
  Country: US (occurrence: US)
  Receive Date: 20141205
  Receipt Date: 20141205
  Transmission Date: 20150529
  Serious: No
  Sender: FDA-Public Use
  Company Number: US-BRISTOL-MYERS SQUIBB COMPANY-21339734

PATIENT
  Age: 57 Year
  Sex: Female

DRUGS (17)
  1. LEVOTHYROXINE [Concomitant]
     Active Substance: LEVOTHYROXINE
  2. TRAMADOL [Concomitant]
     Active Substance: TRAMADOL
  3. MECLIZINE [Concomitant]
     Active Substance: MECLIZINE\MECLIZINE HYDROCHLORIDE
  4. TRAZODONE HYDROCHLORIDE. [Concomitant]
     Active Substance: TRAZODONE HYDROCHLORIDE
  5. SPRYCEL [Suspect]
     Active Substance: DASATINIB
  6. LYRICA [Concomitant]
     Active Substance: PREGABALIN
  7. PANTOPRAZOLE [Concomitant]
     Active Substance: PANTOPRAZOLE SODIUM
  8. CELEXA [Concomitant]
     Active Substance: CITALOPRAM HYDROBROMIDE
  9. GABAPENTIN. [Concomitant]
     Active Substance: GABAPENTIN
  10. HYOSCYAMINE [Concomitant]
     Active Substance: HYOSCYAMINE
  11. ZYLOPRIM [Concomitant]
     Active Substance: ALLOPURINOL
  12. VITAMIN D [Concomitant]
     Active Substance: CHOLECALCIFEROL
  13. METAXALONE. [Concomitant]
     Active Substance: METAXALONE
  14. CEPHALEXIN. [Concomitant]
     Active Substance: CEPHALEXIN
  15. CYCLOBENZAPRINE [Concomitant]
     Active Substance: CYCLOBENZAPRINE
  16. MAGNESIUM [Concomitant]
     Active Substance: MAGNESIUM
  17. OXYCODONE [Concomitant]
     Active Substance: OXYCODONE

REACTIONS (2)
  - Pain [Unknown]
  - Fatigue [Unknown]
